FAERS Safety Report 4940997-4 (Version None)
Quarter: 2006Q1

REPORT INFORMATION
  Report Type: 
  Country: None (occurrence: None)
  Receive Date: 20060313
  Receipt Date: 20060301
  Transmission Date: 20060701
  Serious: Yes (Other)
  Sender: FDA-Public Use
  Company Number: PHBS2006JP03468

PATIENT
  Age: 50 Year
  Sex: Male

DRUGS (5)
  1. NEORAL [Suspect]
     Indication: COLITIS ULCERATIVE
     Dosage: 200 MG/D
     Route: 048
     Dates: start: 20060218, end: 20060301
  2. LEUKERIN [Suspect]
     Route: 048
     Dates: start: 20060218, end: 20060301
  3. DENOSINE [Suspect]
     Dosage: 500 MG/D
     Route: 042
     Dates: start: 20060220, end: 20060227
  4. SANDIMMUNE [Suspect]
     Indication: COLITIS ULCERATIVE
     Dosage: 200 MG/D
     Route: 042
     Dates: start: 20060203, end: 20060217
  5. PREDONINE [Concomitant]

REACTIONS (7)
  - ALANINE AMINOTRANSFERASE INCREASED [None]
  - ASPARTATE AMINOTRANSFERASE INCREASED [None]
  - BLOOD ALKALINE PHOSPHATASE INCREASED [None]
  - BLOOD BILIRUBIN INCREASED [None]
  - CHOLELITHIASIS [None]
  - GAMMA-GLUTAMYLTRANSFERASE INCREASED [None]
  - LIVER DISORDER [None]
